FAERS Safety Report 15440862 (Version 3)
Quarter: 2018Q4

REPORT INFORMATION
  Report Type: Spontaneous
  Country: JP (occurrence: JP)
  Receive Date: 20180928
  Receipt Date: 20181022
  Transmission Date: 20190204
  Serious: Yes (Hospitalization, Other)
  Sender: FDA-Public Use
  Company Number: JP-PFIZER INC-2018387517

PATIENT
  Age: 94 Year
  Sex: Male

DRUGS (6)
  1. MIYA-BM [Concomitant]
     Active Substance: CLOSTRIDIUM BUTYRICUM SPORES STRAIN M-55
     Dosage: UNK
  2. ESTRACYT [Suspect]
     Active Substance: ESTRAMUSTINE PHOSPHATE SODIUM
     Indication: PROSTATE CANCER
     Dosage: 156.7 MG, 1X/DAY (MG/24H AS REPORTED)
     Route: 048
  3. ALDOMET [Concomitant]
     Active Substance: METHYLDOPA
     Dosage: UNK
  4. NATRIX [Concomitant]
     Active Substance: INDAPAMIDE
     Dosage: UNK
  5. ZYLORIC [Concomitant]
     Active Substance: ALLOPURINOL
     Dosage: UNK
  6. VOLTMIE [Concomitant]
     Active Substance: LIPASE\PROTEASE
     Dosage: UNK

REACTIONS (1)
  - Cerebral infarction [Recovering/Resolving]

NARRATIVE: CASE EVENT DATE: 20180911
